FAERS Safety Report 4385571-6 (Version None)
Quarter: 2004Q2

REPORT INFORMATION
  Report Type: 
  Country: None (occurrence: None)
  Receive Date: 20040625
  Receipt Date: 20040611
  Transmission Date: 20050107
  Serious: Yes (Hospitalization)
  Sender: FDA-Public Use
  Company Number: CIO04014606

PATIENT
  Age: 46 Year
  Sex: Female
  Weight: 72.6 kg

DRUGS (2)
  1. NYQUIL COLD/FLU RELIEF ALCOHOL 10%, FLAVOR UNKNOWN(DOXYLAMINE SUCCINAT [Suspect]
     Dosage: 30 ML, 1/DAY FOR 1 DAY, ORAL
     Route: 048
     Dates: start: 20040527, end: 20040527
  2. HALDOL ^MCNEIL^ (HALOPERIDOL) [Suspect]
     Dosage: UNK DOSE, 1 ONLY 1 FOR 1 DAY, INTRAMUSCULAR
     Route: 030
     Dates: start: 20040527, end: 20040527

REACTIONS (4)
  - ABNORMAL BEHAVIOUR [None]
  - ADVERSE EVENT [None]
  - EMOTIONAL DISORDER [None]
  - REFUSAL OF TREATMENT BY PATIENT [None]
